FAERS Safety Report 21075964 (Version 2)
Quarter: 2022Q3

REPORT INFORMATION
  Report Type: Other
  Country: GB (occurrence: None)
  Receive Date: 20220713
  Receipt Date: 20220912
  Transmission Date: 20221027
  Serious: Yes (Disabling)
  Sender: FDA-Public Use
  Company Number: GB-ROCHE-2522368

PATIENT
  Age: 65 Year
  Sex: Female

DRUGS (45)
  1. TRASTUZUMAB [Suspect]
     Active Substance: TRASTUZUMAB
     Indication: Breast cancer metastatic
     Dosage: DOSE MODIFIED
     Route: 041
     Dates: start: 20170508, end: 20170508
  2. TRASTUZUMAB [Suspect]
     Active Substance: TRASTUZUMAB
     Dosage: DOSE MODIFIED (MODIFIED DUE TO WEIGHT BUT FULL DOSE GIVEN. NEW DOSE ALREADY REPORTED).
     Route: 041
     Dates: start: 20170529, end: 20170829
  3. TRASTUZUMAB [Suspect]
     Active Substance: TRASTUZUMAB
     Dosage: 6 CYCLES, DOSE MODIFIED
     Route: 041
     Dates: start: 20170920, end: 20180103
  4. TRASTUZUMAB [Suspect]
     Active Substance: TRASTUZUMAB
     Dosage: DOSE MODIFIED (MODIFIED DUE TO WEIGHT BUT FULL DOSE GIVEN. NEW DOSE ALREADY REPORTED).
     Route: 041
     Dates: start: 20170508, end: 20170508
  5. ADO-TRASTUZUMAB EMTANSINE [Suspect]
     Active Substance: ADO-TRASTUZUMAB EMTANSINE
     Indication: Breast cancer metastatic
     Route: 042
     Dates: start: 20180420, end: 20180622
  6. PERTUZUMAB [Suspect]
     Active Substance: PERTUZUMAB
     Indication: Breast cancer metastatic
     Dosage: DOSE MODIFIED
     Route: 042
     Dates: start: 20170508, end: 20170508
  7. PERTUZUMAB [Suspect]
     Active Substance: PERTUZUMAB
     Dosage: (PLANNED NUMBER OF CYCLES COMPLETED)
     Route: 042
     Dates: start: 20170529, end: 20180103
  8. DOCETAXEL [Suspect]
     Active Substance: DOCETAXEL
     Indication: Breast cancer metastatic
     Dosage: 6 CYCLES (PLANNED NUMBER OF CYCLES COMPLETED)
     Route: 042
     Dates: start: 20170508, end: 20170829
  9. CAPECITABINE [Suspect]
     Active Substance: CAPECITABINE
     Indication: Breast cancer metastatic
     Route: 048
     Dates: start: 20180809, end: 202009
  10. CYCLOPHOSPHAMIDE [Suspect]
     Active Substance: CYCLOPHOSPHAMIDE
     Indication: Breast cancer metastatic
     Route: 042
     Dates: start: 20201019, end: 20201109
  11. CYCLOPHOSPHAMIDE [Suspect]
     Active Substance: CYCLOPHOSPHAMIDE
     Dosage: NUMBER OF CYCLES COMPLETED
     Route: 042
     Dates: start: 20201130, end: 20210201
  12. EPIRUBICIN [Suspect]
     Active Substance: EPIRUBICIN
     Indication: Breast cancer metastatic
     Dosage: PLANNED NUMBER OF CYCLES COMPLETED
     Route: 042
     Dates: start: 20201019, end: 20210201
  13. FUROSEMIDE [Concomitant]
     Active Substance: FUROSEMIDE
     Indication: Ejection fraction decreased
     Route: 048
     Dates: start: 20180406, end: 20190128
  14. LISINOPRIL [Concomitant]
     Active Substance: LISINOPRIL
     Indication: Ejection fraction decreased
     Route: 048
     Dates: start: 20180130, end: 20210831
  15. ATORVASTATIN [Concomitant]
     Active Substance: ATORVASTATIN
     Indication: Ejection fraction decreased
     Route: 048
     Dates: start: 2017, end: 20210831
  16. LANSOPRAZOLE [Concomitant]
     Active Substance: LANSOPRAZOLE
     Indication: Gastrooesophageal reflux disease
     Route: 048
     Dates: start: 20170905, end: 20210831
  17. AMOXICILLIN\CLAVULANATE POTASSIUM [Concomitant]
     Active Substance: AMOXICILLIN\CLAVULANATE POTASSIUM
     Indication: Pyrexia
     Route: 048
     Dates: start: 20190411, end: 20190417
  18. AMOXICILLIN\CLAVULANATE POTASSIUM [Concomitant]
     Active Substance: AMOXICILLIN\CLAVULANATE POTASSIUM
     Route: 048
     Dates: start: 20210705, end: 20210711
  19. CARVEDILOL [Concomitant]
     Active Substance: CARVEDILOL
     Indication: Ejection fraction decreased
     Route: 048
     Dates: start: 20180130, end: 20210831
  20. CARVEDILOL [Concomitant]
     Active Substance: CARVEDILOL
     Indication: Adverse event
  21. AMITRIPTYLINE [Concomitant]
     Active Substance: AMITRIPTYLINE
     Indication: Anxiety
     Route: 048
     Dates: start: 2017
  22. AMITRIPTYLINE [Concomitant]
     Active Substance: AMITRIPTYLINE
     Indication: Depression
  23. BETAHISTINE [Concomitant]
     Active Substance: BETAHISTINE
     Indication: Adverse event
     Route: 048
     Dates: start: 20200102, end: 202002
  24. ACETAMINOPHEN [Concomitant]
     Active Substance: ACETAMINOPHEN
     Indication: Adverse event
     Route: 048
     Dates: start: 201912, end: 2020
  25. MORPHINE SULFATE [Concomitant]
     Active Substance: MORPHINE SULFATE
     Indication: Adverse event
     Route: 048
     Dates: start: 201912, end: 2020
  26. MORPHINE SULFATE [Concomitant]
     Active Substance: MORPHINE SULFATE
     Route: 048
     Dates: end: 20210831
  27. DALTEPARIN [Concomitant]
     Active Substance: DALTEPARIN
     Indication: Adverse event
     Dosage: 12500 U
     Route: 058
     Dates: start: 20200402, end: 20200402
  28. ONDANSETRON [Concomitant]
     Active Substance: ONDANSETRON
     Route: 048
     Dates: start: 20201019, end: 20210201
  29. DOMPERIDONE [Concomitant]
     Active Substance: DOMPERIDONE
     Route: 048
     Dates: start: 20201019, end: 20201025
  30. DEXAMETHASONE SODIUM PHOSPHATE [Concomitant]
     Active Substance: DEXAMETHASONE SODIUM PHOSPHATE
     Route: 042
     Dates: start: 20201019, end: 20210201
  31. DEXAMETHASONE [Concomitant]
     Active Substance: DEXAMETHASONE
     Route: 048
     Dates: start: 20201019, end: 20210201
  32. DEXAMETHASONE [Concomitant]
     Active Substance: DEXAMETHASONE
     Route: 048
     Dates: start: 20210729, end: 20210831
  33. DOCUSATE SODIUM [Concomitant]
     Active Substance: DOCUSATE SODIUM
     Route: 048
     Dates: start: 20201019, end: 20210831
  34. POLYETHYLENE GLYCOL 3350\POTASSIUM CHLORIDE\SODIUM BICARBONATE\SODIUM [Concomitant]
     Active Substance: POLYETHYLENE GLYCOL 3350\POTASSIUM CHLORIDE\SODIUM BICARBONATE\SODIUM CHLORIDE
     Indication: Adverse event
     Route: 048
     Dates: start: 20201014, end: 20210831
  35. SENNA LEAF [Concomitant]
     Active Substance: SENNA LEAF
     Indication: Adverse event
     Route: 048
     Dates: start: 20201014, end: 20210831
  36. ZOLEDRONIC ACID [Concomitant]
     Active Substance: ZOLEDRONIC ACID
     Route: 042
     Dates: start: 20201109, end: 20210705
  37. CLARITHROMYCIN [Concomitant]
     Active Substance: CLARITHROMYCIN
     Indication: Adverse event
     Route: 048
     Dates: start: 20210705, end: 20210711
  38. OMEPRAZOLE [Concomitant]
     Active Substance: OMEPRAZOLE
     Indication: Dyspepsia
     Route: 048
     Dates: end: 20210831
  39. MIRTAZAPINE [Concomitant]
     Active Substance: MIRTAZAPINE
     Indication: Insomnia
     Route: 048
     Dates: start: 20210608, end: 20210831
  40. MORPHINE SULFATE [Concomitant]
     Active Substance: MORPHINE SULFATE
     Indication: Pain
     Route: 048
     Dates: end: 20210615
  41. MORPHINE SULFATE [Concomitant]
     Active Substance: MORPHINE SULFATE
     Route: 048
     Dates: start: 20210616, end: 20210831
  42. CODEINE PHOSPHATE [Concomitant]
     Active Substance: CODEINE PHOSPHATE
     Indication: Pain
     Route: 048
     Dates: start: 20200710, end: 20200812
  43. DIAH-LIMIT [Concomitant]
  44. SENNA [Concomitant]
     Active Substance: SENNA LEAF\SENNOSIDES\SENNOSIDES A AND B
  45. MORPHINE SULFATE [Concomitant]
     Active Substance: MORPHINE SULFATE

REACTIONS (2)
  - Headache [Not Recovered/Not Resolved]
  - Pleuritic pain [Recovered/Resolved]

NARRATIVE: CASE EVENT DATE: 20210601
